FAERS Safety Report 13675019 (Version 3)
Quarter: 2019Q1

REPORT INFORMATION
  Report Type: Spontaneous
  Country: US (occurrence: US)
  Receive Date: 20170621
  Receipt Date: 20190307
  Transmission Date: 20190417
  Serious: Yes (Other)
  Sender: FDA-Public Use
  Company Number: US-PFIZER INC-2017269259

PATIENT
  Age: 55 Year
  Sex: Female

DRUGS (3)
  1. IBRANCE [Suspect]
     Active Substance: PALBOCICLIB
     Dosage: 125 MG, CYCLIC(1 PO QD FOR 21 DAYS THEN 7 DAYS OFF)
     Route: 048
     Dates: start: 20170420, end: 20170522
  2. IBRANCE [Suspect]
     Active Substance: PALBOCICLIB
     Dosage: 125 MG, CYCLIC (1 CAP PO QD X21D THEN 7D OFF)
     Route: 048
     Dates: start: 20170428
  3. IBRANCE [Suspect]
     Active Substance: PALBOCICLIB
     Dosage: 125 MG, CYCLIC [DAILY FOR 21 DAYS THEN 7 DAYS OFF]
     Route: 048

REACTIONS (6)
  - Nasal discomfort [Unknown]
  - Mood swings [Unknown]
  - Anxiety [Unknown]
  - Neutropenia [Recovering/Resolving]
  - Fatigue [Unknown]
  - Alopecia [Unknown]
